FAERS Safety Report 22641911 (Version 1)
Quarter: 2023Q2

REPORT INFORMATION
  Report Type: Spontaneous
  Country: US (occurrence: None)
  Receive Date: 20230623
  Receipt Date: 20230623
  Transmission Date: 20230722
  Serious: Yes (Death)
  Sender: FDA-Public Use
  Company Number: None

PATIENT
  Age: 75 Year
  Sex: Male
  Weight: 73.94 kg

DRUGS (10)
  1. JAYPIRCA [Suspect]
     Active Substance: PIRTOBRUTINIB
     Indication: Mantle cell lymphoma
     Dosage: FREQUENCY : DAILY;?
     Route: 048
     Dates: start: 202304, end: 202306
  2. ACYCLOVIR [Concomitant]
     Active Substance: ACYCLOVIR
  3. ATENOLOL [Concomitant]
     Active Substance: ATENOLOL
  4. BRUKINSA [Concomitant]
  5. SENNA [Concomitant]
  6. OMEPRAZOLE [Concomitant]
     Active Substance: OMEPRAZOLE
  7. MORPHINE [Concomitant]
     Active Substance: MORPHINE
  8. RITUXAN [Concomitant]
  9. BACTRIM [Concomitant]
  10. TAMSULOSIN [Concomitant]

REACTIONS (1)
  - Death [None]

NARRATIVE: CASE EVENT DATE: 20230619
